FAERS Safety Report 24108997 (Version 1)
Quarter: 2024Q3

REPORT INFORMATION
  Report Type: Spontaneous
  Country: CN (occurrence: CN)
  Receive Date: 20240718
  Receipt Date: 20240718
  Transmission Date: 20241017
  Serious: Yes (Death, Life-Threatening, Hospitalization)
  Sender: ACCORD
  Company Number: CN-MLMSERVICE-20240701-PI118841-00082-1

PATIENT
  Age: 68 Year
  Sex: Male

DRUGS (8)
  1. CARBOPLATIN [Suspect]
     Active Substance: CARBOPLATIN
     Indication: Small cell lung cancer extensive stage
     Dosage: 500 MG, Q3W
     Dates: start: 20210921
  2. ETOPOSIDE [Suspect]
     Active Substance: ETOPOSIDE
     Indication: Small cell lung cancer extensive stage
     Dosage: 170 MG, DAYS 1-3, Q3W
     Dates: start: 20210921
  3. DURVALUMAB [Suspect]
     Active Substance: DURVALUMAB
     Indication: Small cell lung cancer extensive stage
     Dosage: 1,000 MG, Q3W
     Dates: start: 20210921
  4. IPRATROPIUM BROMIDE [Concomitant]
     Active Substance: IPRATROPIUM BROMIDE\IPRATROPIUM BROMIDE ANHYDROUS
     Dates: start: 202109
  5. DOXOFYLLINE [Concomitant]
     Active Substance: DOXOFYLLINE
     Dates: start: 202109
  6. CEFTAZIDIME [Concomitant]
     Active Substance: CEFTAZIDIME
     Indication: Interstitial lung disease
     Dates: start: 202109
  7. BUDESONIDE [Concomitant]
     Active Substance: BUDESONIDE
     Dates: start: 202109
  8. ACETYLCYSTEINE [Concomitant]
     Active Substance: ACETYLCYSTEINE
     Dosage: INHALATION USE
     Dates: start: 202109

REACTIONS (3)
  - Cytokine storm [Fatal]
  - Multi-organ disorder [Fatal]
  - Immune-mediated lung disease [Fatal]

NARRATIVE: CASE EVENT DATE: 20211001
